FAERS Safety Report 6821614-5 (Version None)
Quarter: 2010Q3

REPORT INFORMATION
  Report Type: 
  Country: None (occurrence: None)
  Receive Date: 20100707
  Receipt Date: 20090605
  Transmission Date: 20110219
  Serious: Yes (Other)
  Sender: FDA-Public Use
  Company Number: US-PFIZER INC-2009206644

PATIENT

DRUGS (4)
  1. ZOLOFT [Suspect]
  2. REMERON [Suspect]
  3. PAXIL [Suspect]
  4. AMITRIPTYLINE [Suspect]

REACTIONS (1)
  - SEROTONIN SYNDROME [None]
